FAERS Safety Report 10076032 (Version 2)
Quarter: 2014Q2

REPORT INFORMATION
  Report Type: Spontaneous
  Country: US (occurrence: None)
  Receive Date: 20140410
  Receipt Date: 20140602
  Transmission Date: 20141212
  Serious: Yes (Hospitalization)
  Sender: FDA-Public Use
  Company Number: 2273440

PATIENT
  Age: 75 Year
  Sex: Male
  Weight: 79.4 kg

DRUGS (18)
  1. GEMCITABINE [Suspect]
     Indication: SOFT TISSUE SARCOMA
     Dosage: 1692 MG MILLIGRAM(S) (CYCLICAL) INTRAVENOUS DRIP
     Route: 041
     Dates: start: 20131230, end: 20140312
  2. INVESTIGATIONAL DRUG [Suspect]
     Indication: SOFT TISSUE SARCOMA
     Dosage: 702 MG MILLIGRAM(S) (CYCLICAL) INTRAVENOUS DRIP
     Route: 041
     Dates: start: 20131230, end: 20140312
  3. DOCETAXEL [Suspect]
     Indication: SOFT TISSUE SARCOMA
     Dosage: 113 MG MILLIGRAM(S) (CYCLICAL) INTRAVENOUS DRIP
     Route: 041
     Dates: start: 20140108, end: 20140219
  4. COSOPT [Concomitant]
  5. LATANOPROST [Concomitant]
  6. ALLOPURINOL [Concomitant]
  7. LOVASTATIN [Concomitant]
  8. CENTRUM SILVER [Concomitant]
  9. BRIMONIDINE [Concomitant]
  10. FLUTICASONE [Concomitant]
  11. AMLODIPINE [Concomitant]
  12. DORZOLAMIDE [Concomitant]
  13. PEGFILGRASTIM [Concomitant]
  14. GLIPIZIDE [Concomitant]
  15. RED BLOOD CELLS [Concomitant]
  16. FUROSEMIDE [Concomitant]
  17. INSULIN [Concomitant]
  18. DEXAMETHASONE [Concomitant]

REACTIONS (8)
  - Hypoxia [None]
  - Hypoglycaemia [None]
  - Anaemia [None]
  - Mental status changes [None]
  - Blood glucose decreased [None]
  - Unresponsive to stimuli [None]
  - Hyperhidrosis [None]
  - Pneumonitis [None]
